FAERS Safety Report 12551631 (Version 1)
Quarter: 2016Q3

REPORT INFORMATION
  Report Type: Spontaneous
  Country: US (occurrence: US)
  Receive Date: 20160713
  Receipt Date: 20160713
  Transmission Date: 20161109
  Serious: Yes (Other)
  Sender: FDA-Public Use
  Company Number: US-CIPLA LTD.-2016US09459

PATIENT

DRUGS (6)
  1. IRINOTECAN [Suspect]
     Active Substance: IRINOTECAN
     Dosage: UNK, OVER 90 MIN ON DAYS 1, 15 AND 29 OF EACH 42 DAY CYCLE
     Route: 042
  2. SUNITINIB [Suspect]
     Active Substance: SUNITINIB
     Indication: MALIGNANT GLIOMA
     Dosage: UNK, QD, WITHOUT REGARD TO FOOD FOR 4 WEEKS FOLLOWE BY 2 WEEK REST, 42 DAY CYCLE
     Route: 048
  3. IRINOTECAN [Suspect]
     Active Substance: IRINOTECAN
     Indication: MALIGNANT GLIOMA
     Dosage: UNK, PRIOR THERAPY
     Route: 065
  4. VANDETANIB. [Suspect]
     Active Substance: VANDETANIB
     Indication: MALIGNANT GLIOMA
     Dosage: UNK, PRIOR THERAPY
     Route: 065
  5. TEMOZOLOMIDE. [Suspect]
     Active Substance: TEMOZOLOMIDE
     Indication: MALIGNANT GLIOMA
     Dosage: UNK, PRIOR THERAPY
     Route: 065
  6. BEVACIZUMAB [Suspect]
     Active Substance: BEVACIZUMAB
     Indication: MALIGNANT GLIOMA
     Dosage: UNK, PRIOR THERAPY
     Route: 065

REACTIONS (3)
  - Lipase abnormal [Unknown]
  - Amylase abnormal [Unknown]
  - Disease progression [Unknown]
